FAERS Safety Report 13802460 (Version 1)
Quarter: 2017Q3

REPORT INFORMATION
  Report Type: Spontaneous
  Country: US (occurrence: US)
  Receive Date: 20170727
  Receipt Date: 20170727
  Transmission Date: 20171127
  Serious: Yes (Other)
  Sender: FDA-Public Use
  Company Number: None

PATIENT
  Age: 55 Year
  Sex: Male
  Weight: 77.18 kg

DRUGS (1)
  1. BUPRENORPHINE HCL NALOXONE HCL 8/2MG [Suspect]
     Active Substance: BUPRENORPHINE HYDROCHLORIDE\NALOXONE
     Indication: DRUG DEPENDENCE
     Dosage: 8MG/2MG 2 DAILY SLQD
     Route: 060
     Dates: start: 20170712, end: 20170726

REACTIONS (4)
  - Nausea [None]
  - Vomiting [None]
  - Product substitution issue [None]
  - Headache [None]

NARRATIVE: CASE EVENT DATE: 20170712
